FAERS Safety Report 25764648 (Version 3)
Quarter: 2025Q4

REPORT INFORMATION
  Report Type: Spontaneous
  Country: JP (occurrence: JP)
  Receive Date: 20250905
  Receipt Date: 20251223
  Transmission Date: 20260117
  Serious: Yes (Hospitalization, Other)
  Sender: ROCHE
  Company Number: JP-CHUGAI-2025027982

PATIENT
  Age: 73 Year
  Sex: Male

DRUGS (7)
  1. PIASKY [Suspect]
     Active Substance: CROVALIMAB-AKKZ
     Indication: Paroxysmal nocturnal haemoglobinuria
     Route: 041
  2. PIASKY [Suspect]
     Active Substance: CROVALIMAB-AKKZ
     Route: 058
  3. PIASKY [Suspect]
     Active Substance: CROVALIMAB-AKKZ
     Route: 058
  4. PIASKY [Suspect]
     Active Substance: CROVALIMAB-AKKZ
     Route: 058
  5. PIASKY [Suspect]
     Active Substance: CROVALIMAB-AKKZ
     Route: 058
  6. PIASKY [Suspect]
     Active Substance: CROVALIMAB-AKKZ
     Route: 058
     Dates: start: 20250904, end: 20250904
  7. GRANULOCYTE COLONY-STIMULATING FACTOR NOS [Concomitant]
     Active Substance: GRANULOCYTE COLONY-STIMULATING FACTOR NOS

REACTIONS (2)
  - Pyrexia [Recovered/Resolved]
  - Febrile neutropenia [Unknown]

NARRATIVE: CASE EVENT DATE: 20250820
